FAERS Safety Report 22259522 (Version 1)
Quarter: 2023Q2

REPORT INFORMATION
  Report Type: Spontaneous
  Country: IT (occurrence: IT)
  Receive Date: 20230427
  Receipt Date: 20230427
  Transmission Date: 20230722
  Serious: Yes (Other)
  Sender: FDA-Public Use
  Company Number: None

PATIENT
  Age: 32 Year
  Sex: Female

DRUGS (1)
  1. IBUPROFEN [Suspect]
     Active Substance: IBUPROFEN
     Indication: Product used for unknown indication
     Dosage: 9 GRAM (15 TABS OF 600 MG)
     Route: 048
     Dates: start: 20230406, end: 20230406

REACTIONS (3)
  - Abdominal pain upper [Recovering/Resolving]
  - Substance abuse [Recovering/Resolving]
  - Intentional self-injury [Recovering/Resolving]

NARRATIVE: CASE EVENT DATE: 20230406
